FAERS Safety Report 7284413-9 (Version None)
Quarter: 2011Q1

REPORT INFORMATION
  Report Type: 
  Country: None (occurrence: None)
  Receive Date: 20110209
  Receipt Date: 20110131
  Transmission Date: 20110831
  Serious: Yes (Life-Threatening, Hospitalization)
  Sender: FDA-Public Use
  Company Number: GB-GENENTECH-312722

PATIENT
  Sex: Female

DRUGS (6)
  1. METHOTREXATE [Concomitant]
     Indication: PRODUCT USED FOR UNKNOWN INDICATION
     Dosage: 2.5 MG, 1/WEEK
     Route: 048
  2. FOLIC ACID [Concomitant]
     Indication: PRODUCT USED FOR UNKNOWN INDICATION
     Dosage: UNK
     Route: 048
     Dates: start: 20091101
  3. CO-CODAMOL [Concomitant]
     Indication: ANALGESIC THERAPY
     Route: 048
  4. METHYLPREDNISOLONE [Concomitant]
     Indication: PREMEDICATION
     Dosage: 100 MG, PRN
     Route: 042
     Dates: start: 20091202
  5. MABTHERA [Suspect]
     Indication: RHEUMATOID ARTHRITIS
     Dosage: 1000 MG, PRN
     Route: 065
     Dates: start: 20091202
  6. CHLORPHENIRAMINE MALEATE [Concomitant]
     Indication: PREMEDICATION
     Dosage: 10 MG, PRN
     Route: 042
     Dates: start: 20091202

REACTIONS (2)
  - EPILEPSY [None]
  - LOWER RESPIRATORY TRACT INFECTION [None]
